FAERS Safety Report 24973268 (Version 1)
Quarter: 2025Q1

REPORT INFORMATION
  Report Type: Report from Study
  Country: JP (occurrence: JP)
  Receive Date: 20250216
  Receipt Date: 20250216
  Transmission Date: 20250409
  Serious: Yes (Other)
  Sender: ABBVIE
  Company Number: JP-ABBVIE-5805883

PATIENT
  Age: 69 Year
  Sex: Male

DRUGS (4)
  1. VYALEV [Suspect]
     Active Substance: FOSCARBIDOPA\FOSLEVODOPA
     Indication: Parkinson^s disease
     Route: 058
     Dates: start: 20240511
  2. VYALEV [Suspect]
     Active Substance: FOSCARBIDOPA\FOSLEVODOPA
     Route: 058
     Dates: start: 20240604
  3. VYALEV [Suspect]
     Active Substance: FOSCARBIDOPA\FOSLEVODOPA
     Route: 058
  4. VYALEV [Suspect]
     Active Substance: FOSCARBIDOPA\FOSLEVODOPA
     Route: 058

REACTIONS (11)
  - Dysuria [Not Recovered/Not Resolved]
  - Therapeutic product effect incomplete [Unknown]
  - Mobility decreased [Unknown]
  - Musculoskeletal stiffness [Unknown]
  - Infusion site abscess [Recovering/Resolving]
  - Therapeutic product effect variable [Unknown]
  - Infusion site reaction [Recovered/Resolved]
  - Infusion site reaction [Unknown]
  - Eye discharge [Unknown]
  - Hallucination [Unknown]
  - Hallucination, auditory [Unknown]
